FAERS Safety Report 8799074 (Version 1)
Quarter: 2012Q4

REPORT INFORMATION
  Report Type: 
  Country: US (occurrence: US)
  Receive Date: 20120920
  Receipt Date: 20120920
  Transmission Date: 20130627
  Serious: Yes (Other)
  Sender: FDA-Public Use
  Company Number: US-ASTRAZENECA-2011SE59977

PATIENT
  Age: 67 Year
  Sex: Male
  Weight: 104.8 kg

DRUGS (14)
  1. LISINOPRIL [Suspect]
     Dosage: REDUCED TO EVERY OTHER DAY
     Route: 048
  2. LISINOPRIL [Suspect]
     Route: 048
     Dates: start: 20110909
  3. ALBUTEROL [Concomitant]
     Dosage: 2 PUFFS BY INHALATION AS NEEDED
     Route: 055
  4. ADVAIR DISKUS [Concomitant]
     Dosage: 250-50 MICROGRAM PER DOSE IN DSDV, 1 INHALATION
     Route: 055
  5. CELECOXIB [Concomitant]
     Route: 048
  6. HYTRIN [Concomitant]
     Route: 048
  7. OMEPRAZOLE [Concomitant]
     Route: 048
  8. PROSCAR [Concomitant]
     Route: 048
  9. SYNTHROID [Concomitant]
     Route: 048
  10. XANAX [Concomitant]
     Route: 048
  11. ZOCOR [Concomitant]
     Route: 048
  12. ALLEGRA [Concomitant]
     Route: 048
  13. AMOXICILLIN [Concomitant]
     Route: 048
  14. KENALOG [Concomitant]

REACTIONS (7)
  - Bradycardia [Unknown]
  - Eye pruritus [Unknown]
  - Eye irritation [Unknown]
  - Fatigue [Unknown]
  - Asthma [Unknown]
  - Hypersensitivity [Unknown]
  - Asthenia [Unknown]
